FAERS Safety Report 8978080 (Version 2)
Quarter: 2012Q4

REPORT INFORMATION
  Report Type: Spontaneous
  Country: IN (occurrence: None)
  Receive Date: 20120822
  Receipt Date: 20120905
  Transmission Date: 20130627
  Serious: Yes (Death, Hospitalization)
  Sender: FDA-Public Use
  Company Number: 218517

PATIENT
  Age: 55 Year
  Sex: Female
  Weight: 45.8 kg

DRUGS (2)
  1. INNOHEP [Suspect]
     Indication: DVT
     Dosage: (1 in 1 D), subcutaneous
     Route: 058
     Dates: start: 20120413, end: 20120812
  2. MULTIVITAMIN (MULTIVITAMIN /00831701/) (TABLET) [Concomitant]

REACTIONS (8)
  - Diarrhoea [None]
  - Rectal haemorrhage [None]
  - Prothrombin time prolonged [None]
  - Blood alkaline phosphatase increased [None]
  - Bleeding time prolonged [None]
  - Coagulation time prolonged [None]
  - Pancytopenia [None]
  - Hypotension [None]
